FAERS Safety Report 6858432-8 (Version None)
Quarter: 2010Q3

REPORT INFORMATION
  Report Type: 
  Country: None (occurrence: None)
  Receive Date: 20100719
  Receipt Date: 20080204
  Transmission Date: 20110219
  Serious: No
  Sender: FDA-Public Use
  Company Number: US-PFIZER INC-2008012665

PATIENT
  Sex: Female
  Weight: 68.2 kg

DRUGS (7)
  1. CHANTIX [Suspect]
     Indication: SMOKING CESSATION THERAPY
     Dates: start: 20071231
  2. LIPITOR [Concomitant]
  3. FOSAMAX [Concomitant]
  4. ACETYLSALICYLIC ACID [Concomitant]
  5. MULTI-VITAMINS [Concomitant]
  6. CALCIUM WITH VITAMIN D [Concomitant]
  7. ALL OTHER THERAPEUTIC PRODUCTS [Concomitant]

REACTIONS (2)
  - DRUG DISPENSING ERROR [None]
  - DYSGEUSIA [None]
